FAERS Safety Report 8821528 (Version 2)
Quarter: 2013Q4

REPORT INFORMATION
  Report Type: Spontaneous
  Country: US (occurrence: US)
  Receive Date: 20121002
  Receipt Date: 20131024
  Transmission Date: 20140711
  Serious: Yes (Other)
  Sender: FDA-Public Use
  Company Number: US-PFIZER INC-2012242703

PATIENT
  Age: 50 Year
  Sex: Female
  Weight: 53.97 kg

DRUGS (4)
  1. LYRICA [Suspect]
     Indication: FIBROMYALGIA
     Dosage: 50MG IN MORNING AND 100MG AT NIGHT
     Dates: start: 20090901
  2. LYRICA [Suspect]
     Indication: OSTEOARTHRITIS
     Dosage: 75 MG, 1X/DAY
     Dates: start: 201310
  3. LYRICA [Suspect]
     Dosage: 75 MG, ALTERNATE DAY
     Dates: end: 20131019
  4. AMITRIPTYLINE [Concomitant]
     Indication: SLEEP DISORDER
     Dosage: 100 MG, 1X/DAY

REACTIONS (9)
  - Off label use [Unknown]
  - Paralysis [Unknown]
  - Nervousness [Unknown]
  - Frustration [Unknown]
  - Confusional state [Unknown]
  - Hypokinesia [Unknown]
  - Intentional drug misuse [Unknown]
  - Pain [Unknown]
  - Musculoskeletal pain [Unknown]
